FAERS Safety Report 7429058-2 (Version None)
Quarter: 2011Q2

REPORT INFORMATION
  Report Type: 
  Country: None (occurrence: None)
  Receive Date: 20110414
  Receipt Date: 20110330
  Transmission Date: 20111010
  Serious: Yes (Hospitalization)
  Sender: FDA-Public Use
  Company Number: TRP_07601_2011

PATIENT
  Sex: Male
  Weight: 77.8372 kg

DRUGS (6)
  1. ZOLPIDEM TARTRATE [Concomitant]
  2. ZOLPIDEM [Concomitant]
  3. ASPIRIN [Concomitant]
  4. INFERGEN [Suspect]
     Indication: HEPATITIS C
     Dosage: (15 UG QD, [0.5 ML] SUBCUTANEOUS)
     Route: 058
     Dates: start: 20100607, end: 20101207
  5. RIBAVIRIN [Suspect]
     Indication: HEPATITIS C
     Dosage: (400 MG BID, [WITH MEALS; STRENGTH ALSO NOTED AS 200 MG] ORAL)
     Route: 048
     Dates: start: 20091201, end: 20101207
  6. MULTI-VITAMINS [Concomitant]

REACTIONS (22)
  - INSOMNIA [None]
  - OEDEMA [None]
  - GAIT DISTURBANCE [None]
  - BALANCE DISORDER [None]
  - MENTAL STATUS CHANGES [None]
  - PANCYTOPENIA [None]
  - PYREXIA [None]
  - PNEUMONIA [None]
  - PLATELET COUNT DECREASED [None]
  - CONFUSIONAL STATE [None]
  - METABOLIC DISORDER [None]
  - VIRAL INFECTION [None]
  - FATIGUE [None]
  - ANAEMIA [None]
  - DEMYELINATION [None]
  - NEOPLASM [None]
  - HEPATITIS C [None]
  - HYPERTENSION [None]
  - ATAXIA [None]
  - TREMOR [None]
  - METABOLIC ENCEPHALOPATHY [None]
  - CREUTZFELDT-JAKOB DISEASE [None]
